FAERS Safety Report 23884550 (Version 1)
Quarter: 2024Q2

REPORT INFORMATION
  Report Type: Report from Study
  Country: PR (occurrence: PR)
  Receive Date: 20240522
  Receipt Date: 20240522
  Transmission Date: 20240716
  Serious: Yes (Other)
  Sender: FDA-Public Use
  Company Number: PR-PFIZER INC-202400172456

PATIENT
  Age: 74 Year
  Sex: Female

DRUGS (6)
  1. BRAFTOVI [Suspect]
     Active Substance: ENCORAFENIB
     Dosage: 75 MG 4 CAPSULES DAILY
     Dates: start: 20240312, end: 20240515
  2. CANDESARTAN [Concomitant]
     Active Substance: CANDESARTAN
  3. METFORMIN [Concomitant]
     Active Substance: METFORMIN HYDROCHLORIDE
  4. PANTOPRAZOLE [Concomitant]
     Active Substance: PANTOPRAZOLE
  5. METOPROLOL [Concomitant]
     Active Substance: METOPROLOL
  6. ERBITUX [Concomitant]
     Active Substance: CETUXIMAB

REACTIONS (4)
  - Diarrhoea haemorrhagic [Not Recovered/Not Resolved]
  - Abdominal pain [Not Recovered/Not Resolved]
  - Haemoglobin decreased [Not Recovered/Not Resolved]
  - Platelet count decreased [Not Recovered/Not Resolved]

NARRATIVE: CASE EVENT DATE: 20240501
